FAERS Safety Report 22116557 (Version 1)
Quarter: 2023Q1

REPORT INFORMATION
  Report Type: Spontaneous
  Country: JP (occurrence: JP)
  Receive Date: 20230320
  Receipt Date: 20230320
  Transmission Date: 20230418
  Serious: Yes (Life-Threatening, Disabling, Other)
  Sender: FDA-Public Use
  Company Number: JP-NAPPMUNDI-GBR-2023-0106048

PATIENT
  Age: 7 Decade
  Sex: Female

DRUGS (1)
  1. THEOPHYLLINE ANHYDROUS [Suspect]
     Active Substance: THEOPHYLLINE ANHYDROUS
     Indication: Product used for unknown indication
     Dosage: UNK
     Route: 065

REACTIONS (5)
  - Tonic convulsion [Unknown]
  - Cardio-respiratory arrest [Unknown]
  - Toxicity to various agents [Unknown]
  - Acidosis [Unknown]
  - Postresuscitation encephalopathy [Unknown]
